FAERS Safety Report 26106443 (Version 2)
Quarter: 2025Q4

REPORT INFORMATION
  Report Type: Spontaneous
  Country: US (occurrence: US)
  Receive Date: 20251201
  Receipt Date: 20251201
  Transmission Date: 20260118
  Serious: Yes (Other)
  Sender: GILEAD
  Company Number: US-GILEAD-2025-0737562

PATIENT

DRUGS (2)
  1. DESCOVY [Suspect]
     Active Substance: EMTRICITABINE\TENOFOVIR ALAFENAMIDE FUMARATE
     Indication: Product used for unknown indication
     Dosage: UNK
     Route: 065
  2. PIFELTRO [Concomitant]
     Active Substance: DORAVIRINE

REACTIONS (2)
  - Intracranial aneurysm [Unknown]
  - Headache [Unknown]
